FAERS Safety Report 22268836 (Version 3)
Quarter: 2023Q4

REPORT INFORMATION
  Report Type: Report from Study
  Country: US (occurrence: US)
  Receive Date: 20230501
  Receipt Date: 20231011
  Transmission Date: 20240110
  Serious: No
  Sender: FDA-Public Use
  Company Number: US-002147023-NVSC2023US098301

PATIENT
  Sex: Female

DRUGS (13)
  1. KETOCONAZOLE [Suspect]
     Active Substance: KETOCONAZOLE
     Indication: Psoriasis
     Dosage: 2 %
     Route: 061
  2. HYDROCORTISONE [Suspect]
     Active Substance: HYDROCORTISONE
     Indication: Psoriasis
     Dosage: 2.5 %
     Route: 061
  3. TRIAMCINOLONE [Suspect]
     Active Substance: TRIAMCINOLONE
     Indication: Psoriasis
     Dosage: 0.25 %
     Route: 061
  4. CLOBETASOL [Suspect]
     Active Substance: CLOBETASOL
     Indication: Psoriasis
     Dosage: 0.05 %, QD
     Route: 061
  5. CLOBETASOL [Suspect]
     Active Substance: CLOBETASOL
     Dosage: 0.05 MG
     Route: 065
  6. CLOBETASOL [Suspect]
     Active Substance: CLOBETASOL
     Dosage: 0.05 MG (SOLUTION)
     Route: 061
  7. CLOBETASOL [Suspect]
     Active Substance: CLOBETASOL
     Dosage: 0.05 MG (SOLUTION)
     Route: 050
  8. CLOTRIMAZOLE [Suspect]
     Active Substance: CLOTRIMAZOLE
     Indication: Psoriasis
     Dosage: 0.05 %
     Route: 061
  9. MUPIROCIN [Suspect]
     Active Substance: MUPIROCIN
     Indication: Psoriasis
     Dosage: 2 % (CREAM)
     Route: 061
  10. CELECOXIB [Suspect]
     Active Substance: CELECOXIB
     Indication: Psoriasis
     Dosage: 200 MG
     Route: 048
  11. CEPHALEXIN [Suspect]
     Active Substance: CEPHALEXIN
     Indication: Psoriasis
     Dosage: 500 MG
     Route: 048
  12. HYDROCODONE [Suspect]
     Active Substance: HYDROCODONE
     Indication: Psoriasis
     Dosage: 325 MG
     Route: 048
  13. OXYBUTYNIN [Suspect]
     Active Substance: OXYBUTYNIN
     Indication: Psoriasis
     Dosage: 5 MG
     Route: 048

REACTIONS (1)
  - Drug ineffective [Unknown]
